FAERS Safety Report 14318510 (Version 1)
Quarter: 2017Q4

REPORT INFORMATION
  Report Type: Spontaneous
  Country: RU (occurrence: RU)
  Receive Date: 20171222
  Receipt Date: 20171222
  Transmission Date: 20180321
  Serious: Yes (Other)
  Sender: FDA-Public Use
  Company Number: RU-009507513-1712RUS008544

PATIENT
  Age: 46 Year
  Sex: Male

DRUGS (5)
  1. BETAMETHASONE DIPROPIONATE. [Suspect]
     Active Substance: BETAMETHASONE DIPROPIONATE
     Indication: POLYARTHRITIS
     Dosage: UNK
     Dates: start: 2011
  2. BETAMETHASONE DIPROPIONATE. [Suspect]
     Active Substance: BETAMETHASONE DIPROPIONATE
     Indication: GOUTY ARTHRITIS
     Dosage: 7 MG, ONCE
     Dates: start: 201712
  3. IBUPROFEN. [Concomitant]
     Active Substance: IBUPROFEN
     Indication: POLYARTHRITIS
     Dosage: 2400 MG DAILY
     Dates: start: 2016, end: 201701
  4. CELECOXIB. [Concomitant]
     Active Substance: CELECOXIB
     Indication: POLYARTHRITIS
     Dosage: 600 MG, QD
     Dates: start: 2016, end: 201701
  5. DICLOFENAC SODIUM. [Concomitant]
     Active Substance: DICLOFENAC SODIUM
     Indication: POLYARTHRITIS
     Dosage: 150 MG, DAILY
     Dates: start: 2016, end: 201701

REACTIONS (3)
  - Diabetes mellitus [Not Recovered/Not Resolved]
  - Contraindicated product administered [Unknown]
  - Drug ineffective [Unknown]

NARRATIVE: CASE EVENT DATE: 2017
